FAERS Safety Report 8410123-8 (Version None)
Quarter: 2012Q2

REPORT INFORMATION
  Report Type: 
  Country: None (occurrence: None)
  Receive Date: 20120605
  Receipt Date: 20120530
  Transmission Date: 20120825
  Serious: Yes (Death, Other)
  Sender: FDA-Public Use
  Company Number: US-US-EMD SERONO, INC.-7135910

PATIENT
  Sex: Male

DRUGS (4)
  1. REBIF [Suspect]
     Dates: start: 20120521, end: 20120523
  2. STEROIDS (HIGH DOSE) [Concomitant]
     Indication: OPTIC NEURITIS
  3. PAXIL [Concomitant]
     Indication: DEPRESSION
  4. REBIF [Suspect]
     Indication: MULTIPLE SCLEROSIS
     Route: 058
     Dates: start: 20120509, end: 20120521

REACTIONS (2)
  - NERVOUSNESS [None]
  - COMPLETED SUICIDE [None]
